FAERS Safety Report 11425109 (Version 1)
Quarter: 2015Q3

REPORT INFORMATION
  Report Type: Report from Study
  Country: NL (occurrence: NL)
  Receive Date: 20150827
  Receipt Date: 20150827
  Transmission Date: 20151125
  Serious: Yes (Other)
  Sender: FDA-Public Use
  Company Number: PHHY2015NL057043

PATIENT
  Age: 72 Year
  Sex: Female

DRUGS (4)
  1. TOBI PODHALER [Suspect]
     Active Substance: TOBRAMYCIN
     Indication: ESCHERICHIA BACTERAEMIA
  2. TOBI PODHALER [Suspect]
     Active Substance: TOBRAMYCIN
     Indication: CHRONIC OBSTRUCTIVE PULMONARY DISEASE
     Dosage: 28 DAYS SCHEDULE
     Route: 065
  3. TOBI PODHALER [Suspect]
     Active Substance: TOBRAMYCIN
     Indication: SJOGREN^S SYNDROME
  4. TOBI PODHALER [Suspect]
     Active Substance: TOBRAMYCIN
     Indication: PSEUDOMONAS INFECTION

REACTIONS (9)
  - Cough [Unknown]
  - Muscle rupture [Unknown]
  - Asthma [Unknown]
  - Pneumonia [Unknown]
  - Dyspnoea [Unknown]
  - Lung infection [Unknown]
  - Secretion discharge [Unknown]
  - Contusion [Unknown]
  - Off label use [Unknown]

NARRATIVE: CASE EVENT DATE: 20150508
